FAERS Safety Report 25628407 (Version 1)
Quarter: 2025Q3

REPORT INFORMATION
  Report Type: Spontaneous
  Country: CO (occurrence: CO)
  Receive Date: 20250731
  Receipt Date: 20250731
  Transmission Date: 20251021
  Serious: Yes (Other)
  Sender: PFIZER
  Company Number: CO-PFIZER INC-PV202500092121

PATIENT
  Sex: Female

DRUGS (1)
  1. PALBOCICLIB [Suspect]
     Active Substance: PALBOCICLIB

REACTIONS (2)
  - Malignant neoplasm progression [Unknown]
  - Mastectomy [Unknown]
